FAERS Safety Report 5165446-5 (Version None)
Quarter: 2006Q4

REPORT INFORMATION
  Report Type: 
  Country: None (occurrence: None)
  Receive Date: 20061206
  Receipt Date: 20061031
  Transmission Date: 20070319
  Serious: Yes (Other)
  Sender: FDA-Public Use
  Company Number: 2006AP05241

PATIENT
  Age: 3620 Day
  Sex: Male

DRUGS (5)
  1. PULMICORT RESPULES [Suspect]
     Indication: ASTHMA
     Route: 055
     Dates: start: 20061010, end: 20061013
  2. MELLABON [Concomitant]
     Route: 048
     Dates: start: 19970304
  3. TAVEGYL [Concomitant]
     Route: 048
     Dates: start: 19970304
  4. INTAL [Concomitant]
     Route: 048
     Dates: start: 19970304
  5. ALBINA [Concomitant]
     Route: 048
     Dates: start: 19970731

REACTIONS (1)
  - ASTHMA [None]
